FAERS Safety Report 15110418 (Version 1)
Quarter: 2018Q2

REPORT INFORMATION
  Report Type: Spontaneous
  Country: US (occurrence: US)
  Receive Date: 20180612
  Receipt Date: 20180612
  Transmission Date: 20180711
  Serious: Yes (Hospitalization)
  Sender: FDA-Public Use
  Company Number: None

PATIENT
  Age: 62 Year
  Sex: Female
  Weight: 107.5 kg

DRUGS (10)
  1. ADVAIR HFA [Concomitant]
     Active Substance: FLUTICASONE PROPIONATE\SALMETEROL XINAFOATE
  2. JARDIANCE [Concomitant]
     Active Substance: EMPAGLIFLOZIN
  3. FE GLUC [Concomitant]
  4. LOFIBRA [Concomitant]
     Active Substance: FENOFIBRATE
  5. NOVOLOG [Concomitant]
     Active Substance: INSULIN ASPART
  6. GLUMETZA [Concomitant]
     Active Substance: METFORMIN HYDROCHLORIDE
  7. TOPROL XL [Concomitant]
     Active Substance: METOPROLOL SUCCINATE
  8. FENOFIBRIC [Concomitant]
     Active Substance: FENOFIBRIC ACID
  9. COZAAR [Concomitant]
     Active Substance: LOSARTAN POTASSIUM
  10. ELIQUIS [Suspect]
     Active Substance: APIXABAN
     Indication: ATRIAL FIBRILLATION
     Route: 048

REACTIONS (5)
  - Mucous stools [None]
  - Haematochezia [None]
  - Abdominal pain lower [None]
  - Refusal of treatment by patient [None]
  - Product solubility abnormal [None]

NARRATIVE: CASE EVENT DATE: 20180206
